FAERS Safety Report 5306463-1 (Version None)
Quarter: 2007Q2

REPORT INFORMATION
  Report Type: 
  Country: None (occurrence: None)
  Receive Date: 20070424
  Receipt Date: 20070418
  Transmission Date: 20071010
  Serious: Yes (Hospitalization)
  Sender: FDA-Public Use
  Company Number: US-GENENTECH-239540

PATIENT
  Sex: Male
  Weight: 64.399 kg

DRUGS (13)
  1. BEVACIZUMAB [Suspect]
     Indication: DRUG USE FOR UNKNOWN INDICATION
     Dosage: 5 MG/KG, Q2W
     Route: 042
     Dates: start: 20070104
  2. LEUCOVORIN CALCIUM [Concomitant]
     Indication: DRUG USE FOR UNKNOWN INDICATION
     Dosage: 355 MG, UNK
     Route: 042
     Dates: start: 20061219
  3. FLUOROURACIL [Concomitant]
     Indication: DRUG USE FOR UNKNOWN INDICATION
     Dosage: 1050 MG, QD
     Dates: start: 20061219
  4. OXALIPLATIN [Concomitant]
     Indication: DRUG USE FOR UNKNOWN INDICATION
     Dosage: 150 MG, UNK
     Dates: start: 20061219
  5. MEGACE [Concomitant]
     Indication: HUNGER
     Dates: start: 20061219
  6. ALPRAZOLAM [Concomitant]
     Indication: ANXIETY
     Dosage: 0.5 MG, TID
     Dates: start: 20070111
  7. DECADRON [Concomitant]
     Indication: PREMEDICATION
     Dosage: 355 MG, UNK
     Route: 042
     Dates: start: 20061219
  8. ENDOCET [Concomitant]
     Indication: DRUG USE FOR UNKNOWN INDICATION
     Dosage: UNK, PRN
     Dates: start: 20061219
  9. COMPAZINE [Concomitant]
     Indication: NAUSEA
     Dosage: 10 MG, PRN
     Dates: start: 20061219
  10. OMEPRAZOLE [Concomitant]
     Indication: NAUSEA
     Dosage: 20 MG, PRN
     Dates: start: 20061120
  11. DILAUDID [Concomitant]
     Indication: DRUG USE FOR UNKNOWN INDICATION
     Dosage: 8 MG, PRN
     Dates: start: 20070103
  12. LANTUS [Concomitant]
     Indication: DIABETES MELLITUS
     Dosage: 40 UNIT, UNK
     Route: 058
     Dates: start: 20061120
  13. HUMULIN 70/30 [Concomitant]
     Indication: DIABETES MELLITUS
     Dates: start: 20061120

REACTIONS (1)
  - DIABETIC KETOACIDOSIS [None]
